FAERS Safety Report 9701679 (Version 1)
Quarter: 2013Q4

REPORT INFORMATION
  Report Type: Report from Study
  Country: None (occurrence: US)
  Receive Date: 20131119
  Receipt Date: 20131119
  Transmission Date: 20140711
  Serious: Yes (Other)
  Sender: FDA-Public Use
  Company Number: US-SAVIENT-2013S1000022

PATIENT
  Age: 59 Year
  Sex: Male
  Weight: 151.82 kg

DRUGS (14)
  1. KRYSTEXXA [Suspect]
     Indication: GOUTY TOPHUS
     Route: 042
     Dates: start: 20120725, end: 20120725
  2. KRYSTEXXA [Suspect]
     Route: 042
     Dates: start: 20120711, end: 20120711
  3. KRYSTEXXA [Suspect]
     Route: 042
     Dates: start: 20120627, end: 20120627
  4. SOLUMEDROL [Concomitant]
     Indication: ALLERGY PROPHYLAXIS
  5. TYLENOL [Concomitant]
     Indication: ALLERGY PROPHYLAXIS
  6. BENADRYL [Concomitant]
     Indication: ALLERGY PROPHYLAXIS
  7. ANTIHISTAMINE [Concomitant]
     Indication: ALLERGY PROPHYLAXIS
     Dates: start: 20120724
  8. CARVEDILOL [Concomitant]
     Indication: PRODUCT USED FOR UNKNOWN INDICATION
  9. DOXAZOSIN [Concomitant]
     Indication: PRODUCT USED FOR UNKNOWN INDICATION
  10. LIPITOR [Concomitant]
     Indication: PRODUCT USED FOR UNKNOWN INDICATION
  11. METFORMIN [Concomitant]
     Indication: PRODUCT USED FOR UNKNOWN INDICATION
  12. ASA [Concomitant]
     Indication: PRODUCT USED FOR UNKNOWN INDICATION
  13. BENICAR [Concomitant]
     Indication: PRODUCT USED FOR UNKNOWN INDICATION
  14. FUROSEMIDE [Concomitant]
     Indication: PRODUCT USED FOR UNKNOWN INDICATION

REACTIONS (2)
  - Infusion related reaction [Recovered/Resolved]
  - Therapeutic response decreased [Unknown]
